FAERS Safety Report 11539629 (Version 1)
Quarter: 2015Q3

REPORT INFORMATION
  Report Type: Spontaneous
  Country: US (occurrence: None)
  Receive Date: 20150922
  Receipt Date: 20150922
  Transmission Date: 20151125
  Serious: Yes (Other)
  Sender: FDA-Public Use
  Company Number: None

PATIENT
  Age: 6 Month
  Sex: Female

DRUGS (1)
  1. SOVALDI [Suspect]
     Active Substance: SOFOSBUVIR
     Indication: CHRONIC HEPATITIS C
     Dosage: STRENGTH: 400   DOSE FORM: ORAL
     Route: 048
     Dates: start: 20150814

REACTIONS (4)
  - Photophobia [None]
  - Pain [None]
  - Eye infection [None]
  - Eye discharge [None]

NARRATIVE: CASE EVENT DATE: 20150910
